FAERS Safety Report 7515966-0 (Version None)
Quarter: 2011Q2

REPORT INFORMATION
  Report Type: 
  Country: None (occurrence: None)
  Receive Date: 20110601
  Receipt Date: 20110527
  Transmission Date: 20111010
  Serious: Yes (Other)
  Sender: FDA-Public Use
  Company Number: US-SANOFI-AVENTIS-2011SA034059

PATIENT
  Age: 75 Year
  Sex: Female

DRUGS (7)
  1. GLYBURIDE [Concomitant]
  2. POTASSIUM CHLORIDE [Concomitant]
  3. MULTAQ [Suspect]
     Indication: ATRIAL FIBRILLATION
     Route: 048
     Dates: start: 20100601
  4. SYNTHROID [Concomitant]
  5. DIOVAN [Concomitant]
     Indication: BLOOD PRESSURE
  6. PLAVIX [Concomitant]
  7. LANTUS [Concomitant]

REACTIONS (5)
  - CONDITION AGGRAVATED [None]
  - CONSTIPATION [None]
  - VISION BLURRED [None]
  - BLINDNESS [None]
  - HALO VISION [None]
